FAERS Safety Report 5145199-7 (Version None)
Quarter: 2006Q4

REPORT INFORMATION
  Report Type: 
  Country: None (occurrence: None)
  Receive Date: 20061107
  Receipt Date: 20061013
  Transmission Date: 20070319
  Serious: Yes (Hospitalization)
  Sender: FDA-Public Use
  Company Number: FI-ROCHE-467044

PATIENT
  Age: 19 Year
  Sex: Female

DRUGS (2)
  1. ROACCUTAN [Suspect]
     Indication: ACNE
     Route: 048
     Dates: start: 20060115, end: 20060418
  2. BIRTH CONTROL PILLS [Concomitant]

REACTIONS (5)
  - ANXIETY [None]
  - DEPRESSION [None]
  - HALLUCINATION, VISUAL [None]
  - OBSESSIVE THOUGHTS [None]
  - REACTIVE PSYCHOSIS [None]
